FAERS Safety Report 8002874-4 (Version None)
Quarter: 2011Q4

REPORT INFORMATION
  Report Type: 
  Country: None (occurrence: None)
  Receive Date: 20111222
  Receipt Date: 20110117
  Transmission Date: 20120403
  Serious: No
  Sender: FDA-Public Use
  Company Number: US-GLAXOSMITHKLINE-A0906490A

PATIENT
  Age: 72 Year
  Sex: Male

DRUGS (7)
  1. IPRATROPIUM BROMIDE [Concomitant]
  2. UNKNOWN MEDICATION [Concomitant]
  3. ASPIRIN [Concomitant]
  4. LOSARTAN POTASSIUM [Concomitant]
  5. AVODART [Suspect]
     Indication: PROSTATOMEGALY
     Dosage: 1CAP PER DAY
     Route: 048
     Dates: start: 20101101, end: 20101201
  6. BLOOD PRESSURE MEDICATION [Concomitant]
  7. ALBUTEROL [Concomitant]

REACTIONS (2)
  - NIPPLE PAIN [None]
  - BREAST TENDERNESS [None]
